FAERS Safety Report 7380898-8 (Version None)
Quarter: 2011Q1

REPORT INFORMATION
  Report Type: 
  Country: None (occurrence: None)
  Receive Date: 20110329
  Receipt Date: 20110315
  Transmission Date: 20110831
  Serious: Yes (Hospitalization, Other)
  Sender: FDA-Public Use
  Company Number: PHHY2011BR22475

PATIENT
  Sex: Male

DRUGS (5)
  1. SPIRONOLACTONE [Concomitant]
     Dosage: 25 MG, UNK
  2. ATENOLOL [Concomitant]
     Dosage: 100 MG, UNK
  3. DAFLON (DIOSMIN) [Concomitant]
  4. DIOVAN AMLO FIX [Suspect]
     Dosage: 320/10 MG
  5. ANTISTAX [Concomitant]

REACTIONS (6)
  - ANGIOPATHY [None]
  - ROAD TRAFFIC ACCIDENT [None]
  - VEIN DISORDER [None]
  - POOR PERIPHERAL CIRCULATION [None]
  - HYPOAESTHESIA [None]
  - OEDEMA PERIPHERAL [None]
